FAERS Safety Report 21742730 (Version 2)
Quarter: 2022Q4

REPORT INFORMATION
  Report Type: Report from Study
  Country: US (occurrence: US)
  Receive Date: 20221217
  Receipt Date: 20221219
  Transmission Date: 20230112
  Serious: No
  Sender: FDA-Public Use
  Company Number: US-ABBVIE-4240452

PATIENT
  Sex: Male

DRUGS (2)
  1. VENCLEXTA [Suspect]
     Active Substance: VENETOCLAX
     Indication: Acute myeloid leukaemia
     Dosage: DRUG START DATE: 06 DEC 2022
     Route: 048
     Dates: end: 20221211
  2. VENCLEXTA [Suspect]
     Active Substance: VENETOCLAX
     Indication: Acute myeloid leukaemia
     Dosage: THE EVENT BLOOD COUNT ABNORMAL ONSET DATE WAS DEC 2022.
     Route: 048
     Dates: start: 20221212, end: 20221212

REACTIONS (1)
  - Full blood count abnormal [Unknown]
